FAERS Safety Report 9647289 (Version 2)
Quarter: 2014Q2

REPORT INFORMATION
  Report Type: Spontaneous
  Country: US (occurrence: US)
  Receive Date: 20131027
  Receipt Date: 20140418
  Transmission Date: 20141212
  Serious: Yes (Other)
  Sender: FDA-Public Use
  Company Number: US-NAPPMUNDI-USA-2013-0107517

PATIENT
  Age: 33 Year
  Sex: Male

DRUGS (4)
  1. OXYCONTIN (NDA 22-272) [Suspect]
     Indication: PAIN
     Dosage: UNKNOWN
  2. OXYCODONE HYDROCHLORIDE (SIMILAR TO NDA 22-272) [Suspect]
     Indication: PAIN
     Dosage: UNKNOWN
  3. VICODIN [Suspect]
     Indication: PAIN
     Dosage: UNKNOWN
  4. FENTANYL [Suspect]
     Indication: PAIN
     Dosage: UNKNOWN

REACTIONS (2)
  - Drug dependence [Unknown]
  - Feeling abnormal [Unknown]
